FAERS Safety Report 9216387 (Version 4)
Quarter: 2013Q4

REPORT INFORMATION
  Report Type: Spontaneous
  Country: GB (occurrence: None)
  Receive Date: 20130404
  Receipt Date: 20131015
  Transmission Date: 20140711
  Serious: Yes (Other)
  Sender: FDA-Public Use
  Company Number: AUR-APL-2013-02727

PATIENT
  Age: 52 Year
  Sex: Female

DRUGS (1)
  1. CITALOPRAM [Suspect]
     Indication: PRODUCT USED FOR UNKNOWN INDICATION
     Dosage: 10-20MG DAILY
     Dates: start: 20130314

REACTIONS (6)
  - Drug withdrawal syndrome [None]
  - Personality change [None]
  - Feeling abnormal [None]
  - Treatment noncompliance [None]
  - Loss of employment [None]
  - Dissociation [None]
